FAERS Safety Report 16840657 (Version 1)
Quarter: 2019Q3

REPORT INFORMATION
  Report Type: Spontaneous
  Country: GB (occurrence: GB)
  Receive Date: 20190923
  Receipt Date: 20190923
  Transmission Date: 20191005
  Serious: Yes (Other)
  Sender: FDA-Public Use
  Company Number: GB-PFIZER INC-2019402989

PATIENT
  Age: 1 Day
  Sex: Male
  Weight: 4.8 kg

DRUGS (7)
  1. BENZYLPENICILLIN [Concomitant]
     Active Substance: PENICILLIN G
  2. SUXAMETHONIUM [Suspect]
     Active Substance: SUCCINYLCHOLINE
     Dosage: 9.6 MG, (2MG/KG)
     Route: 042
     Dates: start: 20190821, end: 20190821
  3. PARACETAMOL [Concomitant]
     Active Substance: ACETAMINOPHEN
  4. ATRACURIUM BESILATE [Suspect]
     Active Substance: ATRACURIUM BESYLATE
     Dosage: 600 MICROGRAM BOLUS THEN CONTINUOUS INFUSION
     Route: 042
     Dates: start: 20190822, end: 20190822
  5. DOPAMINE [Concomitant]
     Active Substance: DOPAMINE HYDROCHLORIDE
  6. MORPHINE [Concomitant]
     Active Substance: MORPHINE
  7. GENTAMICIN. [Concomitant]
     Active Substance: GENTAMICIN

REACTIONS (1)
  - Hyperthermia [Recovering/Resolving]

NARRATIVE: CASE EVENT DATE: 20190821
